FAERS Safety Report 5808083-9 (Version None)
Quarter: 2008Q3

REPORT INFORMATION
  Report Type: 
  Country: None (occurrence: None)
  Receive Date: 20080708
  Receipt Date: 20080626
  Transmission Date: 20090109
  Serious: Yes (Hospitalization)
  Sender: FDA-Public Use
  Company Number: URSO-2008-068

PATIENT
  Age: 56 Year
  Sex: Female

DRUGS (7)
  1. DELURSAN (URSODEOXYCHOLIC ACID) [Suspect]
     Indication: CHOLESTASIS
     Dosage: 500 MG (DELURSAN) ORAL
     Route: 048
     Dates: start: 20041101, end: 20070101
  2. DELURSAN (URSODEOXYCHOLIC ACID) [Suspect]
     Indication: CHOLESTASIS
     Dosage: 500 MG (DELURSAN) ORAL
     Route: 048
     Dates: start: 20080213, end: 20080227
  3. URSOLVAN (URSODEOXYCHOLIC ACID) [Suspect]
     Indication: CHOLESTASIS
     Dosage: 2 DF ORAL
     Route: 048
     Dates: start: 20080229, end: 20080310
  4. RIFAMPICINE (RIFAMPICINE) [Suspect]
     Indication: SARCOIDOSIS
     Dosage: 300 MG ORAL
     Route: 048
     Dates: start: 20071113, end: 20080227
  5. ISONIAZIDE (ISONIAZIDE) [Suspect]
     Indication: SARCOIDOSIS
     Dosage: 150 MG ORAL
     Route: 048
     Dates: start: 20071113, end: 20080227
  6. PYRAZINAMIDE [Concomitant]
  7. RIFINAH (RIFAMPICIN AND ISONIAZIDE) [Concomitant]

REACTIONS (13)
  - AMENORRHOEA [None]
  - ANGIOTENSIN CONVERTING ENZYME INCREASED [None]
  - BLOOD ALKALINE PHOSPHATASE INCREASED [None]
  - BLOOD CREATININE DECREASED [None]
  - DISSEMINATED INTRAVASCULAR COAGULATION [None]
  - GAMMA-GLUTAMYLTRANSFERASE INCREASED [None]
  - HAEMOGLOBIN DECREASED [None]
  - HEPATOSPLENOMEGALY [None]
  - HYPERPROTEINAEMIA [None]
  - MENOMETRORRHAGIA [None]
  - NEUTROPENIA [None]
  - THROMBOCYTOPENIA [None]
  - THROMBOTIC MICROANGIOPATHY [None]
